FAERS Safety Report 7574237-7 (Version None)
Quarter: 2011Q2

REPORT INFORMATION
  Report Type: 
  Country: None (occurrence: None)
  Receive Date: 20110627
  Receipt Date: 20110516
  Transmission Date: 20111010
  Serious: No
  Sender: FDA-Public Use
  Company Number: US-BAYER-2011-043861

PATIENT
  Sex: Female

DRUGS (1)
  1. RID MOUSSE [Suspect]
     Indication: LICE INFESTATION
     Dosage: COUNT SIZE 2OZ
     Route: 061
     Dates: start: 20110101

REACTIONS (1)
  - NO ADVERSE EVENT [None]
